FAERS Safety Report 23265049 (Version 3)
Quarter: 2023Q4

REPORT INFORMATION
  Report Type: Other
  Country: US (occurrence: None)
  Receive Date: 20231206
  Receipt Date: 20231228
  Transmission Date: 20240110
  Serious: Yes (Other)
  Sender: FDA-Public Use
  Company Number: US-ROCHE-3466348

PATIENT
  Age: 65 Year
  Sex: Female
  Weight: 76.272 kg

DRUGS (5)
  1. ACTEMRA [Suspect]
     Active Substance: TOCILIZUMAB
     Indication: Rheumatoid lung
     Route: 042
     Dates: start: 2021, end: 2021
  2. ACTEMRA [Suspect]
     Active Substance: TOCILIZUMAB
     Indication: Rheumatoid arthritis
  3. ACTEMRA [Suspect]
     Active Substance: TOCILIZUMAB
     Indication: Rheumatoid arthritis
     Route: 058
  4. ACTEMRA [Suspect]
     Active Substance: TOCILIZUMAB
     Indication: Rheumatoid lung
  5. PREDNISONE [Concomitant]
     Active Substance: PREDNISONE

REACTIONS (13)
  - Pulmonary fibrosis [Not Recovered/Not Resolved]
  - Blood pressure increased [Recovered/Resolved]
  - Diarrhoea [Recovering/Resolving]
  - Flatulence [Recovering/Resolving]
  - Gastritis [Not Recovered/Not Resolved]
  - Urticaria [Unknown]
  - Skin mass [Unknown]
  - Drug hypersensitivity [Unknown]
  - Gastrointestinal inflammation [Unknown]
  - Weight increased [Unknown]
  - Headache [Recovered/Resolved]
  - Fatigue [Unknown]
  - Speech disorder [Unknown]
